FAERS Safety Report 16473190 (Version 1)
Quarter: 2019Q2

REPORT INFORMATION
  Report Type: Spontaneous
  Country: CN (occurrence: CN)
  Receive Date: 20190625
  Receipt Date: 20190625
  Transmission Date: 20190711
  Serious: Yes (Hospitalization)
  Sender: FDA-Public Use
  Company Number: CN-GLAXOSMITHKLINE-CN2019113048

PATIENT
  Age: 63 Year
  Sex: Male
  Weight: 76 kg

DRUGS (10)
  1. FAMCICLOVIR. [Suspect]
     Active Substance: FAMCICLOVIR
     Indication: ANTIVIRAL TREATMENT
     Dosage: 0.25 G, TID
     Route: 048
     Dates: start: 20190505, end: 20190603
  2. METHYCOBAL [Suspect]
     Active Substance: METHYLCOBALAMIN
     Indication: NEURALGIA
     Dosage: 500 UG, QD
     Route: 041
     Dates: start: 20190505, end: 20190603
  3. ALPHA LIPOIC ACID [Suspect]
     Active Substance: .ALPHA.-LIPOIC ACID
     Indication: NEURALGIA
     Dosage: 0.6 G, QD
     Route: 041
     Dates: start: 20190516, end: 20190603
  4. VOLTAREN [Suspect]
     Active Substance: DICLOFENAC SODIUM
     Indication: PAIN
     Dosage: 75 MG, QD
     Route: 048
     Dates: start: 20190510, end: 20190603
  5. COMPOUND GLYCYRRHIZIN [Concomitant]
     Indication: ANTIALLERGIC THERAPY
     Dosage: 3 DF, TID
     Route: 048
  6. SODIUM CHLORIDE. [Concomitant]
     Active Substance: SODIUM CHLORIDE
     Dosage: 250 ML, QD
     Route: 041
     Dates: start: 20190603, end: 20190604
  7. SODIUM CHLORIDE. [Concomitant]
     Active Substance: SODIUM CHLORIDE
     Indication: MENSTRUAL DISORDER
     Dosage: 250 ML, QD
     Route: 041
     Dates: start: 20190505
  8. SODIUM CHLORIDE. [Concomitant]
     Active Substance: SODIUM CHLORIDE
     Dosage: 250 ML, QD
     Route: 041
     Dates: start: 20190516, end: 20190603
  9. LIENAL POLYPEPTIDE INJECTION [Suspect]
     Active Substance: INVESTIGATIONAL PRODUCT
     Indication: IMMUNODEFICIENCY
     Dosage: 6 ML, QD
     Route: 041
     Dates: start: 20190603, end: 20190604
  10. CETIRIZINE [Concomitant]
     Active Substance: CETIRIZINE HYDROCHLORIDE
     Indication: ANTIALLERGIC THERAPY
     Dosage: 10 MG, QN
     Route: 048

REACTIONS (1)
  - Rash [Recovered/Resolved]

NARRATIVE: CASE EVENT DATE: 20190603
